FAERS Safety Report 7961487-0 (Version None)
Quarter: 2011Q4

REPORT INFORMATION
  Report Type: 
  Country: None (occurrence: None)
  Receive Date: 20111202
  Receipt Date: 20111202
  Transmission Date: 20120403
  Serious: Yes (Other)
  Sender: FDA-Public Use
  Company Number: None

PATIENT
  Age: 45 Year
  Sex: Female
  Weight: 68 kg

DRUGS (3)
  1. MOTRIN [Concomitant]
  2. MULTI-VITAMIN [Concomitant]
  3. NEUTROGENA MICRO MIST SUNLESS TANNING SPR [Suspect]
     Indication: TANNING
     Dosage: TOPICAL
     Route: 061
     Dates: start: 20110519, end: 20110520

REACTIONS (3)
  - DRUG HYPERSENSITIVITY [None]
  - CONDITION AGGRAVATED [None]
  - ARTHRITIS [None]
